FAERS Safety Report 23323321 (Version 1)
Quarter: 2023Q4

REPORT INFORMATION
  Report Type: Spontaneous
  Country: US (occurrence: None)
  Receive Date: 20231220
  Receipt Date: 20231220
  Transmission Date: 20240110
  Serious: No
  Sender: FDA-Public Use
  Company Number: US-ROCHE-3311414

PATIENT
  Sex: Female

DRUGS (2)
  1. RITUXAN [Suspect]
     Active Substance: RITUXIMAB
     Indication: Sjogren^s syndrome
     Dosage: FORM STRENGTH: 10 MG/ML
     Route: 041
     Dates: start: 202303
  2. BISACODYL [Concomitant]
     Active Substance: BISACODYL

REACTIONS (3)
  - Abdominal distension [Unknown]
  - Constipation [Unknown]
  - Off label use [Unknown]
